FAERS Safety Report 4678303-5 (Version None)
Quarter: 2005Q2

REPORT INFORMATION
  Report Type: 
  Country: None (occurrence: None)
  Receive Date: 20050527
  Receipt Date: 20050517
  Transmission Date: 20051028
  Serious: Yes (Other)
  Sender: FDA-Public Use
  Company Number: 2005077564

PATIENT
  Sex: Female
  Weight: 61.2356 kg

DRUGS (5)
  1. LOPID [Suspect]
     Indication: BLOOD CHOLESTEROL INCREASED
     Dosage: 2400 MG (1200 MG, 2 IN 1 D), ORAL
     Route: 047
  2. LOPID [Suspect]
     Indication: BLOOD TRIGLYCERIDES INCREASED
     Dosage: 2400 MG (1200 MG, 2 IN 1 D), ORAL
     Route: 047
  3. NORVASC [Suspect]
     Indication: HYPERTENSION
     Dosage: 5 MG (5 MG, 1 IN 1 D), ORAL
     Route: 048
  4. ANTIHYPERTENSIVES (ANTIHYPERTENSIVES) [Suspect]
     Indication: HYPERTENSION
  5. ANTIBIOTICS (ANTIBIOTICS) [Suspect]
     Indication: MALAISE

REACTIONS (8)
  - DEAFNESS [None]
  - DRUG HYPERSENSITIVITY [None]
  - HYPERTENSION [None]
  - MALAISE [None]
  - MYALGIA [None]
  - POLYMYALGIA RHEUMATICA [None]
  - REFUSAL OF TREATMENT BY PATIENT [None]
  - SWOLLEN TONGUE [None]
